FAERS Safety Report 21947004 (Version 1)
Quarter: 2023Q1

REPORT INFORMATION
  Report Type: Other
  Country: None (occurrence: AU)
  Receive Date: 20230202
  Receipt Date: 20230202
  Transmission Date: 20230417
  Serious: Yes (Hospitalization, Other)
  Sender: FDA-Public Use
  Company Number: AU-B.Braun Medical Inc.-2137434

PATIENT

DRUGS (1)
  1. DEXTROSE [Suspect]
     Active Substance: DEXTROSE
     Indication: Hypoglycaemia

REACTIONS (2)
  - Drug ineffective [Unknown]
  - Foetal exposure during delivery [Unknown]
